FAERS Safety Report 13117646 (Version 1)
Quarter: 2017Q1

REPORT INFORMATION
  Report Type: Spontaneous
  Country: US (occurrence: US)
  Receive Date: 20170116
  Receipt Date: 20170116
  Transmission Date: 20170428
  Serious: Yes (Other)
  Sender: FDA-Public Use
  Company Number: US-GLAXOSMITHKLINE-US2017004494

PATIENT
  Sex: Male

DRUGS (7)
  1. CLONAZEPAM. [Concomitant]
     Active Substance: CLONAZEPAM
  2. ATENOLOL. [Concomitant]
     Active Substance: ATENOLOL
  3. ADVAIR DISKUS [Suspect]
     Active Substance: FLUTICASONE PROPIONATE\SALMETEROL XINAFOATE
     Indication: CHRONIC OBSTRUCTIVE PULMONARY DISEASE
     Dosage: 1 PUFF(S), BID
     Route: 055
     Dates: end: 201604
  4. NITROGLYCERIN. [Concomitant]
     Active Substance: NITROGLYCERIN
  5. BREO ELLIPTA [Suspect]
     Active Substance: FLUTICASONE FUROATE\VILANTEROL TRIFENATATE
     Indication: CHRONIC OBSTRUCTIVE PULMONARY DISEASE
     Dosage: 1 PUFF(S), QD
     Route: 055
     Dates: start: 201608
  6. SIMVASTATIN. [Concomitant]
     Active Substance: SIMVASTATIN
  7. OXYGEN. [Concomitant]
     Active Substance: OXYGEN

REACTIONS (9)
  - Pneumonia [Recovered/Resolved]
  - Secretion discharge [Recovered/Resolved]
  - Lung infection [Recovered/Resolved]
  - Product use issue [Unknown]
  - Productive cough [Recovered/Resolved]
  - Drug dose omission [Unknown]
  - Intentional product misuse [Unknown]
  - Pyrexia [Recovered/Resolved]
  - Drug ineffective [Unknown]
